FAERS Safety Report 20740380 (Version 1)
Quarter: 2022Q2

REPORT INFORMATION
  Report Type: Spontaneous
  Country: US (occurrence: US)
  Receive Date: 20220422
  Receipt Date: 20220422
  Transmission Date: 20220721
  Serious: Yes (Other)
  Sender: FDA-Public Use
  Company Number: US-SANOFI-01069169

PATIENT
  Age: 68 Year
  Sex: Female

DRUGS (1)
  1. LANTUS SOLOSTAR [Suspect]
     Active Substance: INSULIN GLARGINE
     Dosage: UNK UNK, BID

REACTIONS (6)
  - Myocardial infarction [Unknown]
  - Anaphylactic shock [Unknown]
  - Headache [Unknown]
  - Ulcer [Unknown]
  - Hypertension [Unknown]
  - Blood glucose increased [Unknown]
